FAERS Safety Report 20309832 (Version 1)
Quarter: 2022Q1

REPORT INFORMATION
  Report Type: Spontaneous
  Country: US (occurrence: None)
  Receive Date: 20220107
  Receipt Date: 20220107
  Transmission Date: 20220423
  Serious: No
  Sender: FDA-Public Use
  Company Number: 2021A889948

PATIENT
  Age: 58 Year
  Sex: Male

DRUGS (2)
  1. CALQUENCE [Suspect]
     Active Substance: ACALABRUTINIB
     Indication: Chronic lymphocytic leukaemia
     Dosage: 200.0MG UNKNOWN
     Route: 048
     Dates: start: 202108, end: 202108
  2. OBINUTUZUMAB [Suspect]
     Active Substance: OBINUTUZUMAB
     Indication: Chronic lymphocytic leukaemia
     Dosage: 200.0MG UNKNOWN
     Route: 065
     Dates: start: 202108, end: 202108

REACTIONS (1)
  - Drug intolerance [Unknown]
